FAERS Safety Report 5056373-2 (Version None)
Quarter: 2006Q3

REPORT INFORMATION
  Report Type: 
  Country: None (occurrence: None)
  Receive Date: 20060717
  Receipt Date: 20060703
  Transmission Date: 20061208
  Serious: Yes (Death)
  Sender: FDA-Public Use
  Company Number: TAP2006Q01209

PATIENT
  Age: 86 Year
  Sex: Male

DRUGS (13)
  1. LUPRON DEPOT-4 [Suspect]
     Indication: PROSTATE CANCER
     Dosage: 30 MG, 1 IN 4 M, INTRAMUSCULAR
     Route: 030
     Dates: start: 20050823, end: 20060412
  2. LIPIDIL SUPRA (FENOFIBRATE) [Concomitant]
  3. FLOMAX (MORNIFLUMATE) [Concomitant]
  4. METOPROLOL (METOPROLOL) [Concomitant]
  5. PANTOLOC (PANTOPRAZOLE) [Concomitant]
  6. PERINDOPRIL ERBUMINE [Concomitant]
  7. SEROQUEL [Concomitant]
  8. APO-HYDRO (HYDROCHLOROTHIAZIDE) [Concomitant]
  9. SYNTHROID [Concomitant]
  10. PLAVIX [Concomitant]
  11. NORVASC [Concomitant]
  12. TEGRETOL [Concomitant]
  13. EYE DROPS (TETRYZOLINE HYDROCHLORIDE) [Concomitant]

REACTIONS (1)
  - DEATH [None]
